FAERS Safety Report 7387524-2 (Version None)
Quarter: 2011Q1

REPORT INFORMATION
  Report Type: 
  Country: None (occurrence: None)
  Receive Date: 20110331
  Receipt Date: 20110328
  Transmission Date: 20110831
  Serious: Yes (Other)
  Sender: FDA-Public Use
  Company Number: US-PFIZER INC-2011068923

PATIENT
  Sex: Male
  Weight: 92.971 kg

DRUGS (2)
  1. CELEBREX [Suspect]
     Dosage: 200 MG, 1X/DAY
     Route: 048
     Dates: start: 20110301, end: 20110301
  2. CELEBREX [Suspect]
     Indication: INFLAMMATION
     Dosage: UNK
     Route: 048

REACTIONS (2)
  - POLLAKIURIA [None]
  - RENAL DISORDER [None]
